FAERS Safety Report 18627005 (Version 1)
Quarter: 2020Q4

REPORT INFORMATION
  Report Type: Spontaneous
  Country: CZ (occurrence: CZ)
  Receive Date: 20201217
  Receipt Date: 20201217
  Transmission Date: 20210114
  Serious: Yes (Death, Other)
  Sender: FDA-Public Use
  Company Number: CZ-TAKEDA-2020TUS058391

PATIENT
  Sex: Male

DRUGS (4)
  1. CYCLOPHOSPHAMIDE. [Suspect]
     Active Substance: CYCLOPHOSPHAMIDE
     Indication: CHEMOTHERAPY
     Dosage: UNK
     Route: 065
  2. VELCADE [Suspect]
     Active Substance: BORTEZOMIB
     Indication: CHEMOTHERAPY
     Dosage: UNK
     Route: 065
  3. MELPHALAN. [Suspect]
     Active Substance: MELPHALAN
     Indication: CHEMOTHERAPY
     Dosage: 200 MILLIGRAM/SQ. METER
     Route: 065
     Dates: start: 201207
  4. DEXAMETHASONE. [Suspect]
     Active Substance: DEXAMETHASONE
     Indication: CHEMOTHERAPY
     Dosage: UNK
     Route: 065

REACTIONS (1)
  - Plasma cell myeloma [Fatal]
